FAERS Safety Report 21312901 (Version 2)
Quarter: 2022Q4

REPORT INFORMATION
  Report Type: Spontaneous
  Country: US (occurrence: US)
  Receive Date: 20220909
  Receipt Date: 20221009
  Transmission Date: 20230112
  Serious: Yes (Other)
  Sender: FDA-Public Use
  Company Number: US-TEVA-2022-US-2071237

PATIENT
  Sex: Female

DRUGS (12)
  1. AJOVY [Suspect]
     Active Substance: FREMANEZUMAB-VFRM
     Indication: Migraine
     Dosage: MONTHLY
     Route: 065
     Dates: start: 20220112, end: 20220612
  2. AJOVY [Suspect]
     Active Substance: FREMANEZUMAB-VFRM
  3. VENLAFAXINE [Concomitant]
     Active Substance: VENLAFAXINE HYDROCHLORIDE
     Indication: Product used for unknown indication
     Dosage: AT BED TIME
  4. ZONISAMIDE [Concomitant]
     Active Substance: ZONISAMIDE
     Indication: Product used for unknown indication
     Dosage: 2 AT BEDTIME
  5. LAMOTRIGINE [Concomitant]
     Active Substance: LAMOTRIGINE
     Indication: Product used for unknown indication
     Dosage: BREAKFAST AND BEDTIME
  6. CITALOPRAM [Concomitant]
     Active Substance: CITALOPRAM HYDROBROMIDE
     Indication: Product used for unknown indication
     Dosage: 1,1/2 AT BREAKFAST, 1 AT BEDTIME
  7. Clobazsm (Onfi) [Concomitant]
     Indication: Product used for unknown indication
     Dosage: 1-10MG, BREAKFAST AND 2 AT BEDTIME
  8. Colase [Concomitant]
     Indication: Product used for unknown indication
     Dosage: 1 TABLET BREAKFAST AND BEDTIME
  9. Mirlaz [Concomitant]
     Indication: Product used for unknown indication
     Dosage: DAILY AND PRN AS NEEDED
  10. ARGININE [Concomitant]
     Active Substance: ARGININE
     Indication: Headache
     Dosage: PRN
  11. EXCEDRIN [Concomitant]
     Active Substance: ACETAMINOPHEN\ASPIRIN\CAFFEINE
     Indication: Migraine
  12. CALTRATE 600+D [Concomitant]
     Indication: Product used for unknown indication
     Dosage: 1 AT BREAKFAST

REACTIONS (1)
  - Seizure [Recovered/Resolved]
